FAERS Safety Report 5908602-8 (Version None)
Quarter: 2008Q4

REPORT INFORMATION
  Report Type: 
  Country: None (occurrence: None)
  Receive Date: 20081001
  Receipt Date: 20080919
  Transmission Date: 20090506
  Serious: No
  Sender: FDA-Public Use
  Company Number: TPA2008A01493

PATIENT
  Age: 75 Year
  Sex: Male
  Weight: 92.9874 kg

DRUGS (13)
  1. ACTOS [Suspect]
     Indication: TYPE 2 DIABETES MELLITUS
     Dosage: 30 MG, 1/2 TAB, 2 IN 1 D, PER ORAL; 3 TAB., PER ORAL; 1/2 TAB. 2 IN 1 D, PER ORAL
     Route: 048
     Dates: start: 20080919, end: 20080919
  2. ACTOS [Suspect]
     Indication: TYPE 2 DIABETES MELLITUS
     Dosage: 30 MG, 1/2 TAB, 2 IN 1 D, PER ORAL; 3 TAB., PER ORAL; 1/2 TAB. 2 IN 1 D, PER ORAL
     Route: 048
     Dates: start: 20080101
  3. ACTOS [Suspect]
     Indication: TYPE 2 DIABETES MELLITUS
     Dosage: 30 MG, 1/2 TAB, 2 IN 1 D, PER ORAL; 3 TAB., PER ORAL; 1/2 TAB. 2 IN 1 D, PER ORAL
     Route: 048
     Dates: start: 20080920
  4. METFORMIN HCL [Concomitant]
  5. OMEPRAZOLE [Concomitant]
  6. ISOSORBIDE (ISOSORBIDE) [Concomitant]
  7. METOPROLOL TARTRATE [Concomitant]
  8. AMLODIPINE [Concomitant]
  9. HYDROCHLOROTHIAZIDE [Concomitant]
  10. LISINOPRIL [Concomitant]
  11. NIASPAN [Concomitant]
  12. ZETIA [Concomitant]
  13. DAYPRO [Concomitant]

REACTIONS (3)
  - ACCIDENTAL EXPOSURE [None]
  - HYPOGLYCAEMIA [None]
  - INCORRECT DOSE ADMINISTERED [None]
